FAERS Safety Report 19178966 (Version 1)
Quarter: 2021Q2

REPORT INFORMATION
  Report Type: Spontaneous
  Country: US (occurrence: US)
  Receive Date: 20210423
  Receipt Date: 20210423
  Transmission Date: 20210717
  Serious: Yes (Life-Threatening)
  Sender: FDA-Public Use
  Company Number: None

PATIENT
  Age: 48 Year
  Sex: Male
  Weight: 191 kg

DRUGS (2)
  1. KETAMINE [Suspect]
     Active Substance: KETAMINE
     Indication: PAIN
     Dosage: ?          OTHER FREQUENCY:CONTINUOUS;?
     Route: 041
     Dates: start: 20210416, end: 20210422
  2. KETAMINE [Suspect]
     Active Substance: KETAMINE
     Indication: SEDATION
     Dosage: ?          OTHER FREQUENCY:CONTINUOUS;?
     Route: 041
     Dates: start: 20210416, end: 20210422

REACTIONS (2)
  - Movement disorder [None]
  - Bradycardia [None]

NARRATIVE: CASE EVENT DATE: 20210422
